FAERS Safety Report 13949193 (Version 2)
Quarter: 2017Q4

REPORT INFORMATION
  Report Type: Spontaneous
  Country: FR (occurrence: FR)
  Receive Date: 20170908
  Receipt Date: 20171003
  Transmission Date: 20180320
  Serious: Yes (Other)
  Sender: FDA-Public Use
  Company Number: FR-TEVA-804344ROM

PATIENT
  Age: 70 Year
  Sex: Female

DRUGS (13)
  1. IRINOTECAN ARROW 20 MG/ML, SOLUTION FOR INFUSION [Suspect]
     Active Substance: IRINOTECAN
     Indication: ADENOCARCINOMA
     Dosage: 220 MG, CYCLICAL
     Route: 041
     Dates: start: 20170515, end: 20170808
  2. RENAUDIN [Concomitant]
     Route: 065
  3. EMEND [Concomitant]
     Active Substance: APREPITANT
     Route: 065
  4. METHYLPREDNISOLONE. [Concomitant]
     Active Substance: METHYLPREDNISOLONE
     Route: 065
  5. ZOPHREN [Concomitant]
     Active Substance: ONDANSETRON
     Dosage: 8MG/4ML
     Route: 065
  6. CALCIUM GLUCONATE. [Concomitant]
     Active Substance: CALCIUM GLUCONATE
  7. MAGNESIUM SULFATE. [Concomitant]
     Active Substance: MAGNESIUM SULFATE
     Route: 065
  8. CALCIUM FOLINATE [Concomitant]
     Active Substance: LEUCOVORIN CALCIUM
     Route: 065
  9. FLUOROURACIL. [Concomitant]
     Active Substance: FLUOROURACIL
     Route: 065
  10. OXALIPLATINE [Concomitant]
     Active Substance: OXALIPLATIN
     Route: 065
  11. PRIMPERAN [Concomitant]
     Active Substance: METOCLOPRAMIDE HYDROCHLORIDE
     Route: 065
  12. SOLUPRED [Concomitant]
     Active Substance: PREDNISOLONE
     Route: 065
  13. NEULASTA [Concomitant]
     Active Substance: PEGFILGRASTIM
     Route: 065

REACTIONS (3)
  - Aphasia [Recovered/Resolved]
  - Dysphonia [Recovered/Resolved]
  - Tongue paralysis [Recovered/Resolved]

NARRATIVE: CASE EVENT DATE: 20170703
